FAERS Safety Report 19498764 (Version 2)
Quarter: 2021Q3

REPORT INFORMATION
  Report Type: Report from Study
  Country: None (occurrence: MX)
  Receive Date: 20210706
  Receipt Date: 20210712
  Transmission Date: 20211014
  Serious: Yes (Hospitalization, Other)
  Sender: FDA-Public Use
  Company Number: MX-ABBVIE-21K-107-3974201-00

PATIENT
  Age: 15 Year
  Sex: Male
  Weight: 54.5 kg

DRUGS (4)
  1. HUMIRA [Suspect]
     Active Substance: ADALIMUMAB
     Route: 058
     Dates: start: 20210420, end: 20210420
  2. HUMIRA [Suspect]
     Active Substance: ADALIMUMAB
     Route: 058
     Dates: start: 202105, end: 202105
  3. HUMIRA [Suspect]
     Active Substance: ADALIMUMAB
     Indication: CROHN^S DISEASE
     Route: 058
     Dates: start: 2015, end: 2015
  4. HUMIRA [Suspect]
     Active Substance: ADALIMUMAB
     Route: 058
     Dates: start: 202105

REACTIONS (12)
  - Anastomotic complication [Unknown]
  - Faecal calprotectin increased [Unknown]
  - Pyrexia [Unknown]
  - Latent tuberculosis [Recovering/Resolving]
  - Inflammatory marker increased [Unknown]
  - Leukopenia [Unknown]
  - Biopsy small intestine abnormal [Unknown]
  - Rectal adenocarcinoma [Recovered/Resolved]
  - Anastomotic stenosis [Unknown]
  - Anastomotic ulcer [Unknown]
  - Colonoscopy abnormal [Unknown]
  - Pruritus [Recovering/Resolving]

NARRATIVE: CASE EVENT DATE: 201506
